FAERS Safety Report 7626937-8 (Version None)
Quarter: 2011Q3

REPORT INFORMATION
  Report Type: 
  Country: None (occurrence: None)
  Receive Date: 20110714
  Receipt Date: 20110705
  Transmission Date: 20111222
  Serious: Yes (Hospitalization)
  Sender: FDA-Public Use
  Company Number: DKLU1071769

PATIENT
  Age: 2 Year
  Sex: Male

DRUGS (2)
  1. LAMICTAL [Concomitant]
  2. SABRIL [Suspect]
     Indication: SIMPLE PARTIAL SEIZURES
     Dosage: 500 MG MILLIGRAM(S), 2 IN 1 D, ORAL

REACTIONS (3)
  - PYREXIA [None]
  - CONVULSION [None]
  - LUNG INFECTION [None]
